FAERS Safety Report 20620921 (Version 1)
Quarter: 2022Q1

REPORT INFORMATION
  Report Type: Spontaneous
  Country: US (occurrence: US)
  Receive Date: 20220322
  Receipt Date: 20220322
  Transmission Date: 20220423
  Serious: Yes (Hospitalization)
  Sender: FDA-Public Use
  Company Number: US-JNJFOC-20220334394

PATIENT
  Age: 42 Year
  Sex: Male
  Weight: 92.616 kg

DRUGS (8)
  1. INVEGA SUSTENNA [Suspect]
     Active Substance: PALIPERIDONE PALMITATE
     Indication: Product used for unknown indication
     Route: 030
  2. INVEGA SUSTENNA [Suspect]
     Active Substance: PALIPERIDONE PALMITATE
  3. INVEGA SUSTENNA [Suspect]
     Active Substance: PALIPERIDONE PALMITATE
  4. HALDOL [Concomitant]
     Active Substance: HALOPERIDOL
  5. MELATONIN [Concomitant]
     Active Substance: MELATONIN
  6. LORAZEPAM [Concomitant]
     Active Substance: LORAZEPAM
  7. DEPAKOTE [Concomitant]
     Active Substance: DIVALPROEX SODIUM
  8. DIPHENHYDRAMINE [Concomitant]
     Active Substance: DIPHENHYDRAMINE

REACTIONS (4)
  - Hallucination [Unknown]
  - Illness [Unknown]
  - Aggression [Unknown]
  - Product dose omission issue [Unknown]
